FAERS Safety Report 8415500-7 (Version None)
Quarter: 2012Q2

REPORT INFORMATION
  Report Type: 
  Country: None (occurrence: None)
  Receive Date: 20120606
  Receipt Date: 20120605
  Transmission Date: 20120825
  Serious: Yes (Death, Other)
  Sender: FDA-Public Use
  Company Number: PHEH2007US06797

PATIENT
  Sex: Male

DRUGS (29)
  1. ZOMETA [Suspect]
     Indication: PROSTATE CANCER
     Dosage: 4 MG, QOD
     Route: 042
     Dates: start: 20030301, end: 20050101
  2. EMCYT [Concomitant]
  3. PENICILLIN [Concomitant]
  4. ANTIBIOTICS [Concomitant]
     Route: 042
     Dates: end: 20050421
  5. HALOPERIDOL [Concomitant]
  6. RESTORIL [Concomitant]
     Dosage: 7.5 MG, QHS
     Route: 048
  7. VICODIN [Concomitant]
  8. LASIX [Concomitant]
     Dosage: 40 MG, QD
     Route: 048
  9. COMPAZINE [Concomitant]
     Dosage: 10 MG, Q6H
     Route: 048
  10. BENADRYL [Concomitant]
     Dosage: 25 MG, Q6H
     Route: 048
  11. BOOST [Concomitant]
  12. CASODEX [Concomitant]
  13. TAXOTERE [Concomitant]
  14. CLOTRIMAZOLE [Concomitant]
  15. CALAMINE LOTION [Concomitant]
  16. PROSCAR [Concomitant]
  17. PROTONIX [Concomitant]
  18. AZITHROMYCIN [Concomitant]
     Dosage: 250 MG, QD
     Route: 048
  19. AREDIA [Suspect]
  20. CLINDAMYCIN [Concomitant]
     Dosage: 300 MG, UNK
     Dates: start: 20040101
  21. BUMETANIDE [Concomitant]
  22. METAMUCIL-2 [Concomitant]
  23. DURAGESIC-100 [Concomitant]
  24. ALLOPURINOL [Concomitant]
     Dosage: 2 DF, QD
     Route: 048
  25. PERCOCET [Concomitant]
     Dosage: 1 DF(10/650), QID
  26. PERIDEX [Concomitant]
     Dates: start: 20040101
  27. LUPRON [Concomitant]
  28. KEFLEX [Concomitant]
     Dosage: 500 MG, QID
     Route: 048
  29. BUMEX [Concomitant]

REACTIONS (83)
  - ANXIETY [None]
  - PARAESTHESIA [None]
  - JOINT EFFUSION [None]
  - SCROTAL OEDEMA [None]
  - HAEMATURIA [None]
  - LIPOMA [None]
  - HYPOKALAEMIA [None]
  - NEOPLASM MALIGNANT [None]
  - GENERAL PHYSICAL HEALTH DETERIORATION [None]
  - GINGIVAL SWELLING [None]
  - BONE EROSION [None]
  - TOOTH INFECTION [None]
  - ABSCESS [None]
  - GOUT [None]
  - CONFUSIONAL STATE [None]
  - RENAL CANCER [None]
  - PAIN [None]
  - PAIN IN JAW [None]
  - URETHRAL OBSTRUCTION [None]
  - PULMONARY EMBOLISM [None]
  - DIZZINESS [None]
  - DEAFNESS [None]
  - DEEP VEIN THROMBOSIS [None]
  - THROMBOSIS [None]
  - OSTEOMYELITIS [None]
  - TOOTH ABSCESS [None]
  - METASTASES TO BONE [None]
  - DEPRESSED MOOD [None]
  - MEMORY IMPAIRMENT [None]
  - CELLULITIS [None]
  - LYMPHOEDEMA [None]
  - CHRONIC OBSTRUCTIVE PULMONARY DISEASE [None]
  - HYDRONEPHROSIS [None]
  - DISCOMFORT [None]
  - ARTHRALGIA [None]
  - DEATH [None]
  - OSTEOMYELITIS CHRONIC [None]
  - SOFT TISSUE DISORDER [None]
  - GLAUCOMA [None]
  - URINARY TRACT INFECTION [None]
  - CARDIAC FAILURE CONGESTIVE [None]
  - CHONDROCALCINOSIS [None]
  - PENILE HAEMORRHAGE [None]
  - RENAL HYPERTROPHY [None]
  - CATARACT [None]
  - BONE PAIN [None]
  - CONSTIPATION [None]
  - PATHOLOGICAL FRACTURE [None]
  - TOOTH DISORDER [None]
  - STOMATITIS [None]
  - TOOTHACHE [None]
  - HEPATITIS [None]
  - DECUBITUS ULCER [None]
  - BALANCE DISORDER [None]
  - VASCULAR CALCIFICATION [None]
  - GASTROENTERITIS [None]
  - CHOLELITHIASIS [None]
  - DECREASED APPETITE [None]
  - WEIGHT DECREASED [None]
  - CARDIAC DISORDER [None]
  - OSTEONECROSIS OF JAW [None]
  - BONE DISORDER [None]
  - MASTICATION DISORDER [None]
  - BACTERIAL DISEASE CARRIER [None]
  - PLEURAL EFFUSION [None]
  - RENAL FAILURE [None]
  - ABDOMINAL PAIN [None]
  - TACHYPNOEA [None]
  - INSOMNIA [None]
  - MUSCULAR WEAKNESS [None]
  - GAIT DISTURBANCE [None]
  - WOUND [None]
  - IMPAIRED HEALING [None]
  - BACTERIAL TEST [None]
  - OSTEOLYSIS [None]
  - OSTEOARTHRITIS [None]
  - EAR PAIN [None]
  - ANAEMIA [None]
  - OEDEMA PERIPHERAL [None]
  - ASTHENIA [None]
  - HYPONATRAEMIA [None]
  - VISION BLURRED [None]
  - FALL [None]
